FAERS Safety Report 24112425 (Version 2)
Quarter: 2024Q3

REPORT INFORMATION
  Report Type: Spontaneous
  Country: US (occurrence: None)
  Receive Date: 20240719
  Receipt Date: 20240824
  Transmission Date: 20241016
  Serious: Yes (Other)
  Sender: ASTRAZENECA
  Company Number: 2024A163696

PATIENT
  Age: 25247 Day
  Sex: Male
  Weight: 61.2 kg

DRUGS (2)
  1. WAINUA [Suspect]
     Active Substance: EPLONTERSEN
     Indication: Polyneuropathy
     Route: 058
     Dates: start: 20240328
  2. WAINUA [Suspect]
     Active Substance: EPLONTERSEN
     Indication: Polyneuropathy
     Route: 058
     Dates: start: 20240401

REACTIONS (1)
  - Vitamin B12 deficiency [Recovered/Resolved]

NARRATIVE: CASE EVENT DATE: 20240505
